FAERS Safety Report 24384408 (Version 1)
Quarter: 2024Q4

REPORT INFORMATION
  Report Type: Spontaneous
  Country: CA (occurrence: CA)
  Receive Date: 20241001
  Receipt Date: 20241001
  Transmission Date: 20250115
  Serious: Yes (Life-Threatening)
  Sender: FRESENIUS KABI
  Company Number: CA-FreseniusKabi-FK202414284

PATIENT
  Age: 17 Year
  Sex: Male
  Weight: 188 kg

DRUGS (11)
  1. FLUDARABINE [Suspect]
     Active Substance: FLUDARABINE PHOSPHATE
     Indication: Bone marrow transplant
     Dosage: FORM: NOT SPECIFIED
     Route: 042
  2. ALEMTUZUMAB [Suspect]
     Active Substance: ALEMTUZUMAB
     Indication: Bone marrow transplant
     Dosage: FORM: SOLUTION INTRAVENOUS
     Route: 042
  3. CYCLOPHOSPHAMIDE [Suspect]
     Active Substance: CYCLOPHOSPHAMIDE
     Indication: Bone marrow transplant
     Dosage: FORM: NOT SPECIFIED
     Route: 042
  4. SIROLIMUS [Suspect]
     Active Substance: SIROLIMUS
     Indication: Bone marrow transplant
     Dosage: FORM: NOT SPECIFIED
     Route: 048
  5. SIROLIMUS [Suspect]
     Active Substance: SIROLIMUS
     Dosage: FORM: NOT SPECIFIED
     Route: 048
  6. AMOXICILLIN [Concomitant]
     Active Substance: AMOXICILLIN
     Indication: Product used for unknown indication
     Dosage: FORM: NOT SPECIFIED
  7. FAMOTIDINE [Concomitant]
     Active Substance: FAMOTIDINE
     Indication: Product used for unknown indication
     Dosage: FORM: NOT SPECIFIED
  8. ONDANSETRON [Concomitant]
     Active Substance: ONDANSETRON
     Indication: Product used for unknown indication
     Dosage: FORM: NOT SPECIFIED
  9. ONDANSETRON [Concomitant]
     Active Substance: ONDANSETRON
     Dosage: FORM: NOT SPECIFIED
  10. ONDANSETRON [Concomitant]
     Active Substance: ONDANSETRON
     Dosage: FORM: NOT SPECIFIED
  11. VALACYCLOVIR [Concomitant]
     Active Substance: VALACYCLOVIR HYDROCHLORIDE
     Indication: Product used for unknown indication
     Dosage: FORM: NOT SPECIFIED

REACTIONS (5)
  - Aplastic anaemia [Unknown]
  - Febrile neutropenia [Unknown]
  - Platelet count increased [Unknown]
  - Skin reaction [Unknown]
  - White blood cell count increased [Unknown]
